FAERS Safety Report 7711897-1 (Version None)
Quarter: 2011Q3

REPORT INFORMATION
  Report Type: 
  Country: None (occurrence: None)
  Receive Date: 20110826
  Receipt Date: 20110818
  Transmission Date: 20111222
  Serious: Yes (Life-Threatening, Other)
  Sender: FDA-Public Use
  Company Number: US-NAPPMUNDI-DEU-2011-0007729

PATIENT
  Age: 39 Year
  Sex: Female

DRUGS (8)
  1. FENTANYL [Suspect]
     Indication: PAIN
     Route: 042
  2. HYDROMORPHONE HCL [Suspect]
     Indication: PAIN
     Dosage: UNK, SEE TEXT
     Route: 042
  3. BUPIVACAINE HCL [Suspect]
     Indication: PAIN
     Route: 008
  4. BUPIVACAINE HCL [Suspect]
     Indication: NEURALGIA
  5. NORTRIPTYLINE HCL [Suspect]
     Indication: PAIN
     Dosage: UNK, DAILY
  6. FENTANYL [Suspect]
     Indication: NEURALGIA
  7. HYDROMORPHONE HCL [Suspect]
     Indication: NEURALGIA
  8. NORTRIPTYLINE HCL [Suspect]
     Indication: NEURALGIA

REACTIONS (6)
  - TREMOR [None]
  - APHASIA [None]
  - TOXICITY TO VARIOUS AGENTS [None]
  - RESPIRATORY DISTRESS [None]
  - MENTAL STATUS CHANGES [None]
  - HALLUCINATION [None]
